FAERS Safety Report 12674378 (Version 1)
Quarter: 2016Q3

REPORT INFORMATION
  Report Type: Spontaneous
  Country: US (occurrence: US)
  Receive Date: 20160822
  Receipt Date: 20160822
  Transmission Date: 20161109
  Serious: No
  Sender: FDA-Public Use
  Company Number: US-BEH-2015056566

PATIENT
  Sex: Male
  Weight: 68.04 kg

DRUGS (38)
  1. MELOXICAM. [Concomitant]
     Active Substance: MELOXICAM
  2. FLOMAX [Concomitant]
     Active Substance: TAMSULOSIN HYDROCHLORIDE
  3. CIPRO [Concomitant]
     Active Substance: CIPROFLOXACIN HYDROCHLORIDE
  4. XOPENEX [Concomitant]
     Active Substance: LEVALBUTEROL HYDROCHLORIDE
  5. LUNESTA [Concomitant]
     Active Substance: ESZOPICLONE
  6. SODIUM CHLORIDE. [Concomitant]
     Active Substance: SODIUM CHLORIDE
  7. MOXIFLOXACIN. [Concomitant]
     Active Substance: MOXIFLOXACIN
  8. DALIRESP [Concomitant]
     Active Substance: ROFLUMILAST
  9. LOSARTAN POTASSIUM. [Concomitant]
     Active Substance: LOSARTAN POTASSIUM
  10. BONIVA [Concomitant]
     Active Substance: IBANDRONATE SODIUM
  11. DIPHENHYDRAMINE. [Concomitant]
     Active Substance: DIPHENHYDRAMINE
  12. PREDNISONE. [Concomitant]
     Active Substance: PREDNISONE
  13. ZEMAIRA [Suspect]
     Active Substance: .ALPHA.1-PROTEINASE INHIBITOR HUMAN
     Indication: EMPHYSEMA
  14. LIDOCAINE. [Concomitant]
     Active Substance: LIDOCAINE
  15. EPIPEN [Concomitant]
     Active Substance: EPINEPHRINE
  16. CYCLOBENZAPRINE HCL [Concomitant]
     Active Substance: CYCLOBENZAPRINE HYDROCHLORIDE
  17. AZITHROMYCIN ANHYDROUS. [Concomitant]
     Active Substance: AZITHROMYCIN ANHYDROUS
  18. SINGULAIR [Concomitant]
     Active Substance: MONTELUKAST SODIUM
  19. DULERA [Concomitant]
     Active Substance: FORMOTEROL FUMARATE DIHYDRATE\MOMETASONE FUROATE
  20. PRATROPIUM-ALBUTEROL [Concomitant]
  21. HYDROCHLOROTHIAZIDE. [Concomitant]
     Active Substance: HYDROCHLOROTHIAZIDE
  22. CYMBALTA [Concomitant]
     Active Substance: DULOXETINE HYDROCHLORIDE
  23. LISINOPRIL. [Concomitant]
     Active Substance: LISINOPRIL
  24. NEXIUM [Concomitant]
     Active Substance: ESOMEPRAZOLE MAGNESIUM
  25. ZEMAIRA [Suspect]
     Active Substance: .ALPHA.1-PROTEINASE INHIBITOR HUMAN
     Indication: ALPHA-1 ANTI-TRYPSIN DEFICIENCY
     Route: 042
     Dates: start: 20070911
  26. FERROUS SULFATE. [Concomitant]
     Active Substance: FERROUS SULFATE
  27. TEMAZEPAM. [Concomitant]
     Active Substance: TEMAZEPAM
  28. DILTIAZEM ER [Concomitant]
     Active Substance: DILTIAZEM
  29. SPIRIVA [Concomitant]
     Active Substance: TIOTROPIUM BROMIDE MONOHYDRATE
  30. CARVEDILOL. [Concomitant]
     Active Substance: CARVEDILOL
  31. ADVAIR HFA [Concomitant]
     Active Substance: FLUTICASONE PROPIONATE\SALMETEROL XINAFOATE
  32. GABAPENTIN. [Concomitant]
     Active Substance: GABAPENTIN
  33. HEPARIN [Concomitant]
     Active Substance: HEPARIN SODIUM
  34. VITAMIN B12 [Concomitant]
     Active Substance: CYANOCOBALAMIN
  35. FOSAMAX [Concomitant]
     Active Substance: ALENDRONATE SODIUM
  36. ASPIRIN. [Concomitant]
     Active Substance: ASPIRIN
  37. CITRACAL + D MAXIMUM [Concomitant]
  38. PANTOPRAZOLE SODIUM. [Concomitant]
     Active Substance: PANTOPRAZOLE SODIUM

REACTIONS (1)
  - Nasopharyngitis [Recovering/Resolving]
